FAERS Safety Report 12869387 (Version 3)
Quarter: 2018Q1

REPORT INFORMATION
  Report Type: Report from Study
  Country: US (occurrence: US)
  Receive Date: 20161020
  Receipt Date: 20180105
  Transmission Date: 20180508
  Serious: No
  Sender: FDA-Public Use
  Company Number: US-AMGEN-USASL2016101339

PATIENT
  Age: 72 Year
  Sex: Female

DRUGS (1)
  1. REPATHA [Suspect]
     Active Substance: EVOLOCUMAB
     Indication: BLOOD CHOLESTEROL INCREASED
     Dosage: 140 MG, Q2WK
     Route: 065
     Dates: start: 20150915

REACTIONS (6)
  - Arthralgia [Unknown]
  - Vascular pain [Recovering/Resolving]
  - Sleep disorder due to a general medical condition [Recovering/Resolving]
  - Paraesthesia [Recovering/Resolving]
  - Bursa disorder [Unknown]
  - Pain in extremity [Recovering/Resolving]
